FAERS Safety Report 8432952-7 (Version None)
Quarter: 2012Q2

REPORT INFORMATION
  Report Type: 
  Country: None (occurrence: None)
  Receive Date: 20120613
  Receipt Date: 20120605
  Transmission Date: 20120825
  Serious: Yes (Other)
  Sender: FDA-Public Use
  Company Number: CA-ROCHE-1073514

PATIENT
  Sex: Male

DRUGS (8)
  1. ZOPICLONE [Concomitant]
     Indication: INSOMNIA
     Dosage: 1 TAB HS
  2. OXYCET [Concomitant]
     Indication: PAIN
     Dosage: PM
  3. VITAMIN D [Concomitant]
  4. CALCIUM [Concomitant]
     Route: 048
  5. VEMURAFENIB [Suspect]
     Indication: METASTATIC MALIGNANT MELANOMA
     Route: 048
     Dates: start: 20120516
  6. EFFEXOR [Concomitant]
     Indication: DEPRESSION
  7. LOVAZA [Concomitant]
     Route: 048
  8. ASCORBIC ACID [Concomitant]

REACTIONS (3)
  - ARTHRALGIA [None]
  - MASS [None]
  - PRURITUS [None]
